FAERS Safety Report 12950543 (Version 1)
Quarter: 2016Q4

REPORT INFORMATION
  Report Type: Spontaneous
  Country: FR (occurrence: FR)
  Receive Date: 20161117
  Receipt Date: 20161117
  Transmission Date: 20170207
  Serious: Yes (Death, Congenital Anomaly, Other)
  Sender: FDA-Public Use
  Company Number: FR-GLAXOSMITHKLINE-FR2016GSK166585

PATIENT
  Sex: Female

DRUGS (1)
  1. LAMICTAL [Suspect]
     Active Substance: LAMOTRIGINE
     Indication: EPILEPSY
     Dosage: 150 MG, QD
     Route: 064
     Dates: start: 20160410, end: 20161013

REACTIONS (2)
  - Foetal exposure during pregnancy [Unknown]
  - Microphthalmos [Fatal]

NARRATIVE: CASE EVENT DATE: 2016
